FAERS Safety Report 4669793-2 (Version None)
Quarter: 2005Q2

REPORT INFORMATION
  Report Type: 
  Country: None (occurrence: None)
  Receive Date: 20050520
  Receipt Date: 20050509
  Transmission Date: 20051028
  Serious: Yes (Hospitalization)
  Sender: FDA-Public Use
  Company Number: 2005BI009083

PATIENT
  Age: 48 Year
  Sex: Female

DRUGS (7)
  1. AVONEX [Suspect]
     Indication: MULTIPLE SCLEROSIS
     Dosage: 30 UG; QW; IM
     Route: 030
     Dates: start: 20000807
  2. LORATADINE [Concomitant]
  3. LISINOPRIL [Concomitant]
  4. AMANTADINE [Concomitant]
  5. BACLOFEN [Concomitant]
  6. MIDRIN [Concomitant]
  7. TYLENOL (CAPLET) [Concomitant]

REACTIONS (4)
  - CYSTOCELE [None]
  - ENTEROCELE [None]
  - RECTOCELE [None]
  - VAGINAL PROLAPSE [None]
